FAERS Safety Report 4694123-X (Version None)
Quarter: 2005Q2

REPORT INFORMATION
  Report Type: 
  Country: None (occurrence: None)
  Receive Date: 20050616
  Receipt Date: 20050616
  Transmission Date: 20051028
  Serious: Yes (Other)
  Sender: FDA-Public Use
  Company Number: None

PATIENT
  Sex: Male
  Weight: 59.6 kg

DRUGS (6)
  1. RITUXIMAB [Suspect]
     Indication: AIDS RELATED COMPLICATION
     Dosage: (CYCLE = 21 DAYS, MAXIMUM OF 6 CYCLES)
     Dates: start: 20050509
  2. ETOPOSIDE [Suspect]
     Dosage: 50 MG/M2/24 HOURS CIV BEGINNING ON DAY 1 X 4 DAYS
     Route: 042
  3. DOXORUBICIN [Suspect]
     Dosage: 10 MG/M2/24 HOURS CIV BEGINNING ON DAY 1X4 DAYS
     Route: 042
  4. VINCRISTINE [Suspect]
     Dosage: 0.4 MG/M2/24 HOURS CIV BEGINNING ON DAY 1X4 DAYS
     Route: 042
  5. CYCLOPHOSPHAMIDE [Suspect]
     Dosage: 375 MG/M2 IV OVER 1 HOUR ON DAY 5
     Route: 042
  6. G-CSF [Suspect]
     Dosage: 5 UG/KG SC QD BEGINNING ON DAY 6 X 10 DAYS OR UNTIL NEUTROPHILL COUNT } 10,000 CELLS/M3.

REACTIONS (4)
  - ABDOMINAL PAIN [None]
  - HYPOTENSION [None]
  - NEUTROPENIA [None]
  - SEPSIS [None]
